FAERS Safety Report 20005621 (Version 1)
Quarter: 2021Q4

REPORT INFORMATION
  Report Type: Spontaneous
  Country: US (occurrence: US)
  Receive Date: 20211028
  Receipt Date: 20211028
  Transmission Date: 20220303
  Serious: No
  Sender: FDA-Public Use
  Company Number: US-SAMSUNG BIOEPIS-SB-2021-22501

PATIENT

DRUGS (1)
  1. ONTRUZANT [Suspect]
     Active Substance: TRASTUZUMAB-DTTB
     Indication: Product used for unknown indication
     Dosage: UNKNOWN
     Route: 065

REACTIONS (2)
  - Muscle spasms [Unknown]
  - Product substitution issue [Unknown]

NARRATIVE: CASE EVENT DATE: 20210910
